FAERS Safety Report 18071826 (Version 2)
Quarter: 2020Q3

REPORT INFORMATION
  Report Type: Spontaneous
  Country: KR (occurrence: KR)
  Receive Date: 20200727
  Receipt Date: 20200729
  Transmission Date: 20201103
  Serious: No
  Sender: FDA-Public Use
  Company Number: KR-ELI_LILLY_AND_COMPANY-KR202007007556

PATIENT
  Sex: Female

DRUGS (1)
  1. FORSTEO 250UG/ML [Suspect]
     Active Substance: TERIPARATIDE
     Indication: OSTEOPOROSIS
     Dosage: 20 UG, DAILY
     Route: 058

REACTIONS (6)
  - Spinal deformity [Unknown]
  - Gait inability [Unknown]
  - Body height decreased [Unknown]
  - Back pain [Not Recovered/Not Resolved]
  - Overdose [Unknown]
  - Musculoskeletal discomfort [Unknown]
